FAERS Safety Report 7959501-1 (Version None)
Quarter: 2011Q4

REPORT INFORMATION
  Report Type: 
  Country: None (occurrence: None)
  Receive Date: 20111206
  Receipt Date: 20111201
  Transmission Date: 20120403
  Serious: Yes (Other)
  Sender: FDA-Public Use
  Company Number: DE-PFIZER INC-2011249631

PATIENT
  Age: 72 Year
  Sex: Male
  Weight: 184 kg

DRUGS (3)
  1. SUTENT [Suspect]
     Dosage: 50 MG, 1X/DAY
     Route: 048
     Dates: start: 20100101, end: 20110330
  2. SUTENT [Suspect]
     Indication: METASTATIC RENAL CELL CARCINOMA
     Dosage: 50 MG, 1X/DAY FOR FOUR WEEKS (THEN 14 DAYS THERAPY BREAK)
     Route: 048
     Dates: start: 20071119, end: 20091001
  3. SUTENT [Suspect]
     Dosage: 50 MG, 1X/DAY
     Route: 048
     Dates: start: 20090101, end: 20100501

REACTIONS (1)
  - TOXIC NEUROPATHY [None]
